FAERS Safety Report 17481234 (Version 1)
Quarter: 2020Q1

REPORT INFORMATION
  Report Type: Spontaneous
  Country: GB (occurrence: GB)
  Receive Date: 20200302
  Receipt Date: 20200302
  Transmission Date: 20200409
  Serious: Yes (Other)
  Sender: FDA-Public Use
  Company Number: GB-MICRO LABS LIMITED-ML2020-00527

PATIENT
  Age: 72 Year
  Sex: Male
  Weight: 54 kg

DRUGS (6)
  1. ATORVASTATIN [Concomitant]
     Active Substance: ATORVASTATIN
     Dates: start: 20191210
  2. SIMVASTATIN. [Suspect]
     Active Substance: SIMVASTATIN
     Dosage: AT NIGHT
     Dates: start: 20190312
  3. CLOPIDOGREL [Concomitant]
     Active Substance: CLOPIDOGREL BISULFATE
     Dosage: LONG TERM AS PER VASULAR SU...
     Dates: start: 20190521
  4. RAMIPRIL. [Concomitant]
     Active Substance: RAMIPRIL
     Dates: start: 20190116
  5. TIOTROPIUM [Concomitant]
     Active Substance: TIOTROPIUM
     Dosage: PUFFS
     Dates: start: 20180614
  6. FUSIDIC ACID [Concomitant]
     Active Substance: FUSIDIC ACID
     Dosage: APPLY
     Dates: start: 20200108, end: 20200115

REACTIONS (1)
  - Nightmare [Recovered/Resolved]
